FAERS Safety Report 4633059-7 (Version None)
Quarter: 2005Q2

REPORT INFORMATION
  Report Type: 
  Country: None (occurrence: None)
  Receive Date: 20050412
  Receipt Date: 20050405
  Transmission Date: 20051028
  Serious: Yes (Hospitalization)
  Sender: FDA-Public Use
  Company Number: US-KINGPHARMUSA00001-K200500465

PATIENT
  Age: 67 Year
  Sex: Female

DRUGS (4)
  1. ALTACE [Suspect]
     Indication: HYPERTENSION
     Dosage: 5 MG, QD
     Route: 048
     Dates: start: 20050101, end: 20050205
  2. AMLODIPINE [Concomitant]
  3. GLIBENCLAMIDE W/METFORMIN HYDROCHLORIDE [Concomitant]
  4. ATORVASTATIN CALCIUM [Concomitant]

REACTIONS (2)
  - SUFFOCATION FEELING [None]
  - TONGUE OEDEMA [None]
